FAERS Safety Report 9157597 (Version 1)
Quarter: 2013Q1

REPORT INFORMATION
  Report Type: Spontaneous
  Country: US (occurrence: None)
  Receive Date: 20130311
  Receipt Date: 20130311
  Transmission Date: 20140127
  Serious: Yes (Disabling, Other)
  Sender: FDA-Public Use
  Company Number: None

PATIENT
  Age: 43 Year
  Sex: Female
  Weight: 81.65 kg

DRUGS (1)
  1. EFFEXOR [Suspect]
     Indication: DEPRESSION
     Route: 048
     Dates: start: 20100527, end: 20111230

REACTIONS (10)
  - Hypomania [None]
  - Personality change [None]
  - Mental disorder [None]
  - Partner stress [None]
  - Brain injury [None]
  - Economic problem [None]
  - Pain [None]
  - Impaired work ability [None]
  - Emotional disorder [None]
  - Mental disorder [None]
